FAERS Safety Report 23226834 (Version 3)
Quarter: 2023Q4

REPORT INFORMATION
  Report Type: Spontaneous
  Country: US (occurrence: US)
  Receive Date: 20231124
  Receipt Date: 20231130
  Transmission Date: 20240109
  Serious: Yes (Life-Threatening, Hospitalization, Other)
  Sender: FDA-Public Use
  Company Number: US-JNJFOC-20231138995

PATIENT
  Age: 55 Year
  Sex: Female

DRUGS (1)
  1. CARVYKTI [Suspect]
     Active Substance: CILTACABTAGENE AUTOLEUCEL
     Indication: Plasma cell myeloma refractory
     Dosage: THERAPY START DAT ALSO REPORTED AS 04-SEP-2023
     Route: 041
     Dates: start: 20230831, end: 20230831

REACTIONS (4)
  - Large intestine perforation [Unknown]
  - Diarrhoea [Recovering/Resolving]
  - Facial paralysis [Recovering/Resolving]
  - Colitis [Unknown]

NARRATIVE: CASE EVENT DATE: 20230101
